FAERS Safety Report 5027380-0 (Version None)
Quarter: 2006Q2

REPORT INFORMATION
  Report Type: 
  Country: None (occurrence: None)
  Receive Date: 20060612
  Receipt Date: 20060523
  Transmission Date: 20061013
  Serious: Yes (Death, Hospitalization)
  Sender: FDA-Public Use
  Company Number: M-06-0415

PATIENT
  Sex: Male

DRUGS (11)
  1. PACERONE [Suspect]
     Indication: ATRIAL FIBRILLATION
     Dosage: 200 MG EVEN DAYS, 100 MG ODD DAYS
     Dates: start: 20050622, end: 20051230
  2. AMIODARONE HCL [Suspect]
     Indication: ATRIAL FIBRILLATION
     Dates: start: 20050601, end: 20050621
  3. COUMADIN [Suspect]
     Indication: ATRIAL FIBRILLATION
     Dosage: 2 MG, QD, PO
     Route: 048
     Dates: start: 20060101, end: 20060119
  4. COUMADIN [Suspect]
     Indication: ATRIAL FIBRILLATION
     Dosage: 2.5 MG, QD, PO
     Route: 048
     Dates: end: 20060101
  5. AVELOX [Concomitant]
  6. COUMADIN [Concomitant]
  7. HYZAAR [Concomitant]
  8. INDERAL LA [Concomitant]
  9. ZOLOFT [Concomitant]
  10. VITAMIN B-12 [Concomitant]
  11. ATIVAN [Concomitant]

REACTIONS (12)
  - BLOOD GLUCOSE INCREASED [None]
  - BLOOD PRESSURE DECREASED [None]
  - BLOOD THYROID STIMULATING HORMONE INCREASED [None]
  - CARDIO-RESPIRATORY ARREST [None]
  - DRUG INTERACTION [None]
  - DRUG TOXICITY [None]
  - HEPATIC ENZYME INCREASED [None]
  - HYPOTHYROIDISM [None]
  - INTERNATIONAL NORMALISED RATIO INCREASED [None]
  - PNEUMONIA [None]
  - RESPIRATORY DISTRESS [None]
  - RESPIRATORY FAILURE [None]
